FAERS Safety Report 18202481 (Version 1)
Quarter: 2020Q3

REPORT INFORMATION
  Report Type: Spontaneous
  Country: US (occurrence: US)
  Receive Date: 20200827
  Receipt Date: 20200827
  Transmission Date: 20201103
  Serious: No
  Sender: FDA-Public Use
  Company Number: US-TEVA-2020-US-1814809

PATIENT
  Sex: Female

DRUGS (15)
  1. ZOFRAN 4 MG [Concomitant]
  2. COLACE [Concomitant]
     Active Substance: DOCUSATE SODIUM
  3. SEROQUEL [Concomitant]
     Active Substance: QUETIAPINE FUMARATE
  4. LOMOTIL [Concomitant]
     Active Substance: ATROPINE SULFATE\DIPHENOXYLATE HYDROCHLORIDE
     Dosage: 2.5?.025MG
  5. CYCLOBENZAPRINE HCL 10 MG [Concomitant]
  6. PROVIGIL 100 MG [Concomitant]
  7. AUSTEDO [Suspect]
     Active Substance: DEUTETRABENAZINE
     Dosage: 24 MILLIGRAM DAILY;
     Route: 048
  8. PRILOSEC OTC 20 MG [Concomitant]
  9. MELOXICAM 15 MG [Concomitant]
     Active Substance: MELOXICAM
  10. CYMBALTA [Concomitant]
     Active Substance: DULOXETINE HYDROCHLORIDE
  11. AUSTEDO [Suspect]
     Active Substance: DEUTETRABENAZINE
     Indication: TARDIVE DYSKINESIA
     Dosage: NEW TITRATING PATIENT
     Route: 048
     Dates: start: 20200414
  12. RITALIN [Concomitant]
     Active Substance: METHYLPHENIDATE HYDROCHLORIDE
  13. MELATONIN 10 MG [Concomitant]
     Active Substance: MELATONIN
  14. TRAMADOL HCL 50 MG [Concomitant]
     Active Substance: TRAMADOL HYDROCHLORIDE
  15. GLUCOSAMINE?CHONDROITIN?MSM [Concomitant]

REACTIONS (1)
  - Affective disorder [Unknown]
